FAERS Safety Report 20802575 (Version 1)
Quarter: 2022Q2

REPORT INFORMATION
  Report Type: Spontaneous
  Country: US (occurrence: None)
  Receive Date: 20220509
  Receipt Date: 20220509
  Transmission Date: 20220720
  Serious: No
  Sender: FDA-Public Use
  Company Number: None

PATIENT
  Age: 75 Year
  Sex: Male
  Weight: 123 kg

DRUGS (1)
  1. EMPAGLIFLOZIN [Suspect]
     Active Substance: EMPAGLIFLOZIN
     Indication: Diabetes mellitus
     Dosage: OTHER QUANTITY : 12.5 MG;?FREQUENCY : DAILY;?
     Route: 048
     Dates: start: 20220120, end: 20220224

REACTIONS (3)
  - Respiratory depression [None]
  - Palpitations [None]
  - Oxygen saturation decreased [None]

NARRATIVE: CASE EVENT DATE: 20220224
